FAERS Safety Report 15733717 (Version 3)
Quarter: 2023Q2

REPORT INFORMATION
  Report Type: Report from Study
  Country: DE (occurrence: None)
  Receive Date: 20181218
  Receipt Date: 20230421
  Transmission Date: 20230721
  Serious: Yes (Hospitalization)
  Sender: FDA-Public Use
  Company Number: DE-ROCHE-2228471

PATIENT
  Age: 76 Year
  Sex: Male
  Weight: 73 kg

DRUGS (7)
  1. OBINUTUZUMAB [Suspect]
     Active Substance: OBINUTUZUMAB
     Indication: Chronic lymphocytic leukaemia
     Dosage: ON 05/SEP/2018, HE RECEIVED THE MOST RECENT DOSE (1000 MG) OF OBINUTUZUMAB PRIOR TO AE (ADVERSE EVEN
     Route: 042
     Dates: start: 20171108, end: 20171215
  2. VENETOCLAX [Suspect]
     Active Substance: VENETOCLAX
     Indication: Chronic lymphocytic leukaemia
     Dosage: RECEIVED DOSE (100 MG) ON 17/DEC/2017. ON 13/MAY/2018, HE RECEIVED THE MOST RECENT DOSE (100 MG) OF
     Route: 048
     Dates: start: 20171129, end: 20180514
  3. IBRUTINIB [Suspect]
     Active Substance: IBRUTINIB
     Indication: Chronic lymphocytic leukaemia
     Dosage: RECEIVED DOSE (420 MG) ON 17/DEC/2017. ON 08/SEP/2018, HE RECEIVED THE MOST RECENT DOSE (420 MG) OF
     Route: 048
     Dates: start: 20171108, end: 20181012
  4. FENOFIBRATE [Concomitant]
     Active Substance: FENOFIBRATE
     Route: 048
  5. ATORVASTATIN [Concomitant]
     Active Substance: ATORVASTATIN
     Route: 048
  6. SULFAMETHOXAZOLE\TRIMETHOPRIM [Concomitant]
     Active Substance: SULFAMETHOXAZOLE\TRIMETHOPRIM
     Dates: start: 20171113
  7. ACYCLOVIR [Concomitant]
     Active Substance: ACYCLOVIR
     Route: 048
     Dates: start: 20171111

REACTIONS (2)
  - Basal cell carcinoma [Recovered/Resolved]
  - Basal cell carcinoma [Recovered/Resolved]

NARRATIVE: CASE EVENT DATE: 20181009
